FAERS Safety Report 25609744 (Version 2)
Quarter: 2025Q3

REPORT INFORMATION
  Report Type: Spontaneous
  Country: KR (occurrence: KR)
  Receive Date: 20250728
  Receipt Date: 20250801
  Transmission Date: 20251020
  Serious: Yes (Other)
  Sender: TAKEDA
  Company Number: KR-TAKEDA-2025TUS065850

PATIENT
  Age: 64 Year
  Sex: Male

DRUGS (9)
  1. NINLARO [Suspect]
     Active Substance: IXAZOMIB CITRATE
     Indication: Plasma cell myeloma
  2. NINLARO [Suspect]
     Active Substance: IXAZOMIB CITRATE
     Dates: start: 20191204, end: 20201028
  3. NINLARO [Suspect]
     Active Substance: IXAZOMIB CITRATE
  4. DEXAMETHASONE [Suspect]
     Active Substance: DEXAMETHASONE
     Indication: Plasma cell myeloma
     Dosage: 7.5 MILLIGRAM, BID
     Dates: start: 20191011
  5. DEXAMETHASONE [Suspect]
     Active Substance: DEXAMETHASONE
     Dosage: 3.25 MILLIGRAM, BID
  6. DEXAMETHASONE [Suspect]
     Active Substance: DEXAMETHASONE
     Dosage: 3.21 MILLIGRAM, QD
  7. REVLIMID [Suspect]
     Active Substance: LENALIDOMIDE
     Indication: Plasma cell myeloma
  8. REVLIMID [Suspect]
     Active Substance: LENALIDOMIDE
     Dates: start: 20191204, end: 20200205
  9. REVLIMID [Suspect]
     Active Substance: LENALIDOMIDE
     Dosage: 5 MILLIGRAM, QOD
     Dates: start: 20200304

REACTIONS (12)
  - Acute kidney injury [Unknown]
  - Neutropenia [Unknown]
  - Thrombocytopenia [Unknown]
  - Neuropathy peripheral [Unknown]
  - Rhinorrhoea [Unknown]
  - Liver function test abnormal [Unknown]
  - Blood creatinine increased [Unknown]
  - Dyspepsia [Unknown]
  - Dyspnoea exertional [Unknown]
  - Pruritus [Unknown]
  - Headache [Unknown]
  - Cough [Unknown]
